FAERS Safety Report 7101132-X (Version None)
Quarter: 2010Q4

REPORT INFORMATION
  Report Type: 
  Country: None (occurrence: None)
  Receive Date: 20101105
  Receipt Date: 20101022
  Transmission Date: 20110411
  Serious: Yes (Hospitalization)
  Sender: FDA-Public Use
  Company Number: 1000016982

PATIENT
  Age: 40 Year
  Sex: Female

DRUGS (10)
  1. ESCITALOPRAM [Suspect]
     Indication: DEPRESSION
     Dosage: 30 MG (30 MG,1 IN 1 D),ORAL ;15 MG (15 MG,1 IN 1 D),ORAL
     Route: 048
     Dates: start: 20070101
  2. VENLAFAXINE [Suspect]
     Indication: DEPRESSION
     Dosage: 75 MG (75 MG,1 IN 1 D),ORAL
     Route: 048
     Dates: start: 20100827, end: 20100831
  3. OMEPRAZOL (OMEPRAZOLE) (OMEPRAZOLE) [Concomitant]
  4. FOLACIN (FOLIC ACID) (TABLETS) (FOLIC ACID) [Concomitant]
  5. PROPAVAN (PROPIOMATE MALEATE) (TABLETS) (PROPIOMAZINE MALEATE) [Concomitant]
  6. THERALEN (ALIMEMAZINE TARTRATE) (TABLETS) (ALIMEMAZINE TARTRATE) [Concomitant]
  7. BEHEPAN (CYANOCOBALAMIN) (TABLETS) (CYANOCOBALAMIN) [Concomitant]
  8. STESOLID (DIAZEPAM) (TABLETS) (DIAZEPAM) [Concomitant]
  9. BRICANYL (TERBUTALINE SULFATE) (TERBUTALINE SULFATE) [Concomitant]
  10. WATAN (WATAN) (WATAN) [Concomitant]

REACTIONS (5)
  - ATAXIA [None]
  - HEAD TITUBATION [None]
  - OVERDOSE [None]
  - POLYNEUROPATHY [None]
  - SEROTONIN SYNDROME [None]
